FAERS Safety Report 9314836 (Version 3)
Quarter: 2013Q3

REPORT INFORMATION
  Report Type: Report from Study
  Country: TR (occurrence: TR)
  Receive Date: 20130529
  Receipt Date: 20130724
  Transmission Date: 20140515
  Serious: Yes (Hospitalization)
  Sender: FDA-Public Use
  Company Number: TR-ROCHE-1227521

PATIENT
  Age: 46 Year
  Sex: Male
  Weight: 75 kg

DRUGS (6)
  1. TOCILIZUMAB [Suspect]
     Indication: RHEUMATOID ARTHRITIS
     Dosage: DATE OF DOSE PRIOR TO THE AE 18/APR/2013
     Route: 042
     Dates: start: 20130219
  2. METHOTREXATE [Concomitant]
     Route: 048
     Dates: start: 20121218
  3. SULPHASALAZINE [Concomitant]
     Route: 065
     Dates: start: 20121218
  4. METHYLPREDNISOLONE [Concomitant]
     Route: 065
     Dates: start: 20121218
  5. ESOMEPRAZOLE [Concomitant]
     Route: 065
     Dates: start: 20121218
  6. FOLIC ACID [Concomitant]
     Route: 048
     Dates: start: 20121218

REACTIONS (1)
  - Mouth haemorrhage [Recovered/Resolved with Sequelae]
